FAERS Safety Report 9483726 (Version 1)
Quarter: 2013Q3

REPORT INFORMATION
  Report Type: Spontaneous
  Country: US (occurrence: US)
  Receive Date: 20130828
  Receipt Date: 20130828
  Transmission Date: 20140515
  Serious: Yes (Hospitalization)
  Sender: FDA-Public Use
  Company Number: US-AMGEN-KDL317926

PATIENT
  Age: 46 Year
  Sex: Female

DRUGS (2)
  1. ENBREL [Suspect]
     Indication: RHEUMATOID ARTHRITIS
     Dosage: 50 MG, QWK
     Route: 058
     Dates: start: 20080905
  2. METHOTREXATE [Concomitant]
     Dosage: 25 MG, QWK
     Route: 048

REACTIONS (6)
  - Gallbladder disorder [Recovered/Resolved]
  - Abdominal pain upper [Unknown]
  - Diarrhoea [Unknown]
  - Urine output decreased [Unknown]
  - Malaise [Unknown]
  - Oedema peripheral [Not Recovered/Not Resolved]
